FAERS Safety Report 11422639 (Version 2)
Quarter: 2015Q3

REPORT INFORMATION
  Report Type: Spontaneous
  Country: PL (occurrence: PL)
  Receive Date: 20150827
  Receipt Date: 20150907
  Transmission Date: 20151125
  Serious: Yes (Other)
  Sender: FDA-Public Use
  Company Number: PL-ROCHE-1625877

PATIENT
  Age: 55 Year
  Sex: Female

DRUGS (3)
  1. RANIBIZUMAB [Suspect]
     Active Substance: RANIBIZUMAB
     Indication: NEOVASCULAR AGE-RELATED MACULAR DEGENERATION
     Dosage: TOTAL 6 INJECTIONS
     Route: 050
     Dates: start: 201305
  2. RANIBIZUMAB [Suspect]
     Active Substance: RANIBIZUMAB
     Dosage: TOTAL 6 INJECTIONS
     Route: 050
     Dates: start: 201401
  3. RANIBIZUMAB [Suspect]
     Active Substance: RANIBIZUMAB
     Dosage: TOTAL 6 INJECTIONS
     Route: 050
     Dates: start: 201311

REACTIONS (2)
  - Drug ineffective [Unknown]
  - Detachment of retinal pigment epithelium [Unknown]
